FAERS Safety Report 4323460-3 (Version None)
Quarter: 2004Q1

REPORT INFORMATION
  Report Type: 
  Country: None (occurrence: None)
  Receive Date: 20040325
  Receipt Date: 20040318
  Transmission Date: 20041129
  Serious: Yes (Hospitalization)
  Sender: FDA-Public Use
  Company Number: FR-ROCHE-362036

PATIENT
  Age: 59 Year
  Sex: Male

DRUGS (7)
  1. PEGASYS [Suspect]
     Indication: HEPATITIS C
     Dosage: TAKEN WEEKLY
     Route: 058
     Dates: start: 20030515
  2. REBETOL [Suspect]
     Indication: HEPATITIS C
     Route: 048
     Dates: start: 20030515
  3. TOPALGIC 100 MG/2 ML (TRAMADOL) [Concomitant]
     Dosage: ONE TABLET BEFORE PEG-INTERFERON ALFA-2A INJECTION AND ONE TABLET 12 HOURS LATER.
  4. COAPROVEL 300 MG/12.5 MG COMPRIMES [Concomitant]
  5. VIRLIX [Concomitant]
  6. ZOLTUM [Concomitant]
  7. DI ANTALVIC [Concomitant]

REACTIONS (2)
  - PAIN [None]
  - THROMBOSIS [None]
